FAERS Safety Report 8622495 (Version 2)
Quarter: 2012Q4

REPORT INFORMATION
  Report Type: 
  Country: DK (occurrence: DK)
  Receive Date: 20120619
  Receipt Date: 20120904
  Transmission Date: 20130627
  Serious: Yes (Life-Threatening, Hospitalization)
  Sender: FDA-Public Use
  Company Number: DK-B.I. PHARMACEUTICALS,INC./RIDGEFIELD-2012-SW-00491DB

PATIENT
  Age: 70 Year
  Sex: Male
  Weight: 113 kg

DRUGS (1)
  1. PRADAXA [Suspect]
     Indication: ATRIAL FIBRILLATION
     Dosage: 300 mg
     Route: 048
     Dates: start: 20120515, end: 20120621

REACTIONS (5)
  - Gastric ulcer haemorrhage [Not Recovered/Not Resolved]
  - Gastric ulcer surgery [Recovered/Resolved]
  - Melaena [Not Recovered/Not Resolved]
  - Haematemesis [Not Recovered/Not Resolved]
  - Transfusion [Recovered/Resolved]
